FAERS Safety Report 23186359 (Version 2)
Quarter: 2024Q2

REPORT INFORMATION
  Report Type: Spontaneous
  Country: BR (occurrence: BR)
  Receive Date: 20231115
  Receipt Date: 20240523
  Transmission Date: 20240716
  Serious: Yes (Hospitalization, Other)
  Sender: FDA-Public Use
  Company Number: BR-SA-SAC20231114000030

PATIENT
  Age: 4 Year
  Sex: Male

DRUGS (3)
  1. SABRIL [Suspect]
     Active Substance: VIGABATRIN
     Indication: Encephalopathy
     Dosage: 1 DF, Q8H
     Route: 065
  2. CLOBAZAM [Suspect]
     Active Substance: CLOBAZAM
     Indication: Product used for unknown indication
     Dosage: 5 MG, BID
     Route: 065
  3. LEVETIRACETAM [Concomitant]
     Active Substance: LEVETIRACETAM
     Indication: Product used for unknown indication
     Dosage: 3.5 ML, BID
     Route: 065

REACTIONS (10)
  - Respiratory tract infection [Unknown]
  - Drug dependence [Unknown]
  - Status epilepticus [Unknown]
  - Epilepsy [Unknown]
  - Seizure [Unknown]
  - Hypotonia [Unknown]
  - Dysphagia [Unknown]
  - Neurodevelopmental delay [Unknown]
  - Poor quality product administered [Unknown]
  - Product use in unapproved indication [Unknown]
